FAERS Safety Report 18285903 (Version 1)
Quarter: 2020Q3

REPORT INFORMATION
  Report Type: Spontaneous
  Country: GB (occurrence: GB)
  Receive Date: 20200919
  Receipt Date: 20200919
  Transmission Date: 20201103
  Serious: Yes (Hospitalization, Other)
  Sender: FDA-Public Use
  Company Number: GB-ACCORD-201389

PATIENT
  Age: 63 Year
  Sex: Female
  Weight: 75 kg

DRUGS (11)
  1. DOXAZOSIN [Suspect]
     Active Substance: DOXAZOSIN MESYLATE
     Indication: HYPERTENSION
     Route: 048
     Dates: start: 20200828
  2. OMEGA?3?ACID ETHYL ESTERS. [Concomitant]
     Active Substance: OMEGA-3-ACID ETHYL ESTERS
     Dates: start: 20200623
  3. DIHYDROCODEINE BITARTRATE/PARACETAMOL [Concomitant]
     Active Substance: ACETAMINOPHEN\DIHYDROCODEINE BITARTRATE
     Dosage: TAKE 1 OR 2 TABS 4 TIMES/DAY. MAX 8 IN 24 HRS 10MG/500MG
     Dates: start: 20200625, end: 20200828
  4. VAGIFEM [Concomitant]
     Active Substance: ESTRADIOL
     Dosage: NIGHTLY
     Dates: start: 20200828
  5. FYBOGEL [Concomitant]
     Active Substance: PLANTAGO OVATA SEED
     Dates: start: 20200813
  6. CIMETIDINE [Concomitant]
     Active Substance: CIMETIDINE
     Dosage: ONCE OR TWICE DAILY 200MG/5M
     Dates: start: 20200604, end: 20200828
  7. PIZOTIFEN [Concomitant]
     Active Substance: PIZOTYLINE
     Dosage: NIGHT
     Dates: start: 20200619
  8. SERTRALINE [Concomitant]
     Active Substance: SERTRALINE HYDROCHLORIDE
     Dates: start: 20200813
  9. CLONAZEPAM. [Concomitant]
     Active Substance: CLONAZEPAM
     Dosage: NIGHT
     Dates: start: 20200716
  10. PREGABALIN. [Concomitant]
     Active Substance: PREGABALIN
     Dates: start: 20200702
  11. RABEPRAZOLE/RABEPRAZOLE SODIUM [Concomitant]
     Active Substance: RABEPRAZOLE SODIUM
     Dates: start: 20200805, end: 20200828

REACTIONS (1)
  - Chest pain [Recovering/Resolving]

NARRATIVE: CASE EVENT DATE: 20200828
